FAERS Safety Report 7288073-2 (Version None)
Quarter: 2011Q1

REPORT INFORMATION
  Report Type: 
  Country: None (occurrence: None)
  Receive Date: 20110211
  Receipt Date: 20110208
  Transmission Date: 20110831
  Serious: Yes (Death, Other)
  Sender: FDA-Public Use
  Company Number: PHHY2011US08851

PATIENT
  Sex: Male

DRUGS (1)
  1. EXJADE [Suspect]
     Indication: LYMPHOMA
     Dosage: 500 MG, UNK
     Route: 048

REACTIONS (7)
  - RESPIRATORY ARREST [None]
  - DIFFUSE LARGE B-CELL LYMPHOMA REFRACTORY [None]
  - METASTASES TO RETROPERITONEUM [None]
  - NEOPLASM MALIGNANT [None]
  - DEATH [None]
  - PNEUMONIA [None]
  - METASTASES TO LUNG [None]
